FAERS Safety Report 9236774 (Version 1)
Quarter: 2013Q2

REPORT INFORMATION
  Report Type: Spontaneous
  Country: JP (occurrence: None)
  Receive Date: 20130415
  Receipt Date: 20130415
  Transmission Date: 20140414
  Serious: No
  Sender: FDA-Public Use
  Company Number: TCI2013A01909

PATIENT
  Sex: Male

DRUGS (1)
  1. ROZEREM TABLETS 8MG (RAMELTEON) [Suspect]
     Route: 048

REACTIONS (3)
  - Hand fracture [None]
  - Sleep disorder [None]
  - Intentional drug misuse [None]
